FAERS Safety Report 4967498-1 (Version None)
Quarter: 2006Q2

REPORT INFORMATION
  Report Type: 
  Country: None (occurrence: None)
  Receive Date: 20060407
  Receipt Date: 20060407
  Transmission Date: 20061013
  Serious: Yes (Hospitalization)
  Sender: FDA-Public Use
  Company Number: None

PATIENT
  Age: 54 Year
  Sex: Female

DRUGS (2)
  1. NEULASTA [Suspect]
     Indication: NEUTROPENIA
     Dosage: 6 MG  QD  SQ
     Route: 058
     Dates: start: 20060127, end: 20060129
  2. TOBACCO [Concomitant]

REACTIONS (4)
  - BONE PAIN [None]
  - INADEQUATE ANALGESIA [None]
  - LEUKOCYTOSIS [None]
  - PAIN [None]
